FAERS Safety Report 25775155 (Version 2)
Quarter: 2025Q3

REPORT INFORMATION
  Report Type: Spontaneous
  Country: CN (occurrence: CN)
  Receive Date: 20250909
  Receipt Date: 20250910
  Transmission Date: 20251020
  Serious: Yes (Hospitalization, Other)
  Sender: ABBVIE
  Company Number: CN-ABBVIE-6447929

PATIENT
  Age: 37 Year
  Sex: Female
  Weight: 47 kg

DRUGS (5)
  1. BOTOX [Suspect]
     Active Substance: ONABOTULINUMTOXINA
     Indication: Skin laxity
     Route: 030
     Dates: start: 20250823, end: 20250823
  2. BOTOX [Suspect]
     Active Substance: ONABOTULINUMTOXINA
     Indication: Skin laxity
     Route: 065
     Dates: start: 20250823, end: 20250823
  3. BOTOX [Suspect]
     Active Substance: ONABOTULINUMTOXINA
     Indication: Skin laxity
     Route: 065
     Dates: start: 202505, end: 202505
  4. BOTOX [Suspect]
     Active Substance: ONABOTULINUMTOXINA
     Indication: Skin laxity
     Route: 065
     Dates: start: 20250823, end: 20250823
  5. BOTOX [Suspect]
     Active Substance: ONABOTULINUMTOXINA
     Indication: Skin laxity
     Route: 023
     Dates: start: 20250823, end: 20250823

REACTIONS (11)
  - Botulism [Not Recovered/Not Resolved]
  - Discomfort [Unknown]
  - Drug resistance [Unknown]
  - Eye movement disorder [Unknown]
  - Mephisto sign [Unknown]
  - Chest discomfort [Unknown]
  - Tremor [Unknown]
  - Ocular discomfort [Unknown]
  - Dizziness [Not Recovered/Not Resolved]
  - Muscular weakness [Unknown]
  - Dyspnoea [Unknown]

NARRATIVE: CASE EVENT DATE: 20250101
